FAERS Safety Report 7967155-3 (Version None)
Quarter: 2011Q4

REPORT INFORMATION
  Report Type: 
  Country: None (occurrence: None)
  Receive Date: 20111209
  Receipt Date: 20111129
  Transmission Date: 20120403
  Serious: Yes (Hospitalization, Other)
  Sender: FDA-Public Use
  Company Number: US-BAYER-201031882NA

PATIENT
  Age: 29 Year
  Sex: Female
  Weight: 102 kg

DRUGS (13)
  1. DROSPIRENONE AND ETHINYL ESTRADIOL [Suspect]
     Indication: CONTRACEPTION
     Dosage: UNK
     Route: 048
     Dates: start: 20090501, end: 20100721
  2. DEPAKOTE ER [Concomitant]
     Dosage: 500 MG, UNK
     Route: 048
     Dates: start: 20061110, end: 20090921
  3. YASMIN [Suspect]
     Indication: CONTRACEPTION
     Dosage: UNK
     Route: 048
     Dates: start: 20070312, end: 20071228
  4. HYDROCODONE BITARTRATE AND ACETAMINOPHEN [Concomitant]
     Indication: PAIN
     Dosage: 7.5-750
     Route: 048
     Dates: start: 20070628
  5. ABILIFY [Concomitant]
     Indication: BIPOLAR DISORDER
     Dosage: UNK
     Dates: start: 20061122, end: 20100622
  6. ZYPREXA [Concomitant]
     Dosage: UNK
     Dates: start: 20061110, end: 20100708
  7. AZELEX [Concomitant]
     Dosage: 20 %, UNK
     Route: 061
     Dates: start: 20070525
  8. ABILIT [Concomitant]
     Indication: DEPRESSION
     Dosage: UNK
     Route: 048
     Dates: start: 20061110, end: 20100721
  9. TRAZODONE HCL [Concomitant]
     Dosage: UNK
     Route: 048
     Dates: start: 20061110, end: 20100708
  10. PREVACID [Concomitant]
     Dosage: 30 MG, UNK
     Route: 048
     Dates: start: 20070519
  11. MULTI-VITAMINS [Concomitant]
     Dosage: UNK
     Route: 048
     Dates: start: 20061110, end: 20090921
  12. CEPHALEXIN [Concomitant]
     Dosage: 500 MG, UNK
     Route: 048
     Dates: start: 20070525
  13. ABILIFY [Concomitant]
     Indication: DEPRESSION

REACTIONS (10)
  - ANXIETY [None]
  - DEPRESSION [None]
  - ABDOMINAL DISTENSION [None]
  - FLATULENCE [None]
  - DIARRHOEA [None]
  - CHOLECYSTITIS CHRONIC [None]
  - SCAR [None]
  - DYSPEPSIA [None]
  - CHOLECYSTECTOMY [None]
  - CONSTIPATION [None]
